FAERS Safety Report 7380137-8 (Version None)
Quarter: 2011Q1

REPORT INFORMATION
  Report Type: 
  Country: None (occurrence: None)
  Receive Date: 20110329
  Receipt Date: 20100804
  Transmission Date: 20110831
  Serious: No
  Sender: FDA-Public Use
  Company Number: US-MYLANLABS-2010S1012405

PATIENT
  Age: 52 Year
  Sex: Female

DRUGS (5)
  1. ESTRADIOL [Suspect]
     Dosage: QW
     Route: 062
  2. FIBERCON [Suspect]
     Indication: MEDICAL DIET
     Route: 048
     Dates: end: 20100425
  3. MOBIC [Suspect]
     Indication: ARTHRITIS
     Route: 048
     Dates: start: 20080101, end: 20100425
  4. ESTRADIOL [Suspect]
     Indication: HORMONE REPLACEMENT THERAPY
     Dosage: QW
     Route: 062
     Dates: start: 20090601, end: 20100703
  5. OSTEO BI-FLEX [Suspect]
     Indication: ARTHRITIS
     Route: 048
     Dates: end: 20100425

REACTIONS (3)
  - HYPERSENSITIVITY [None]
  - DRY MOUTH [None]
  - CHILLS [None]
